FAERS Safety Report 15689583 (Version 2)
Quarter: 2019Q1

REPORT INFORMATION
  Report Type: Report from Study
  Country: DK (occurrence: DK)
  Receive Date: 20181205
  Receipt Date: 20190121
  Transmission Date: 20190417
  Serious: Yes (Death, Hospitalization, Other)
  Sender: FDA-Public Use
  Company Number: DK-PFIZER INC-2018498224

PATIENT
  Age: 63 Year
  Sex: Female

DRUGS (3)
  1. AMLODIPINE BESILATE [Suspect]
     Active Substance: AMLODIPINE BESYLATE
     Dosage: 425 MG, UNK
  2. ENALAPRIL [Suspect]
     Active Substance: ENALAPRIL
  3. METOPROLOL TARTRATE. [Suspect]
     Active Substance: METOPROLOL TARTRATE
     Dosage: 4250 MG, UNK

REACTIONS (3)
  - Coma [Fatal]
  - Cardiotoxicity [Fatal]
  - Overdose [Fatal]
